FAERS Safety Report 8886847 (Version 3)
Quarter: 2014Q1

REPORT INFORMATION
  Report Type: Spontaneous
  Country: US (occurrence: US)
  Receive Date: 20121105
  Receipt Date: 20140227
  Transmission Date: 20141002
  Serious: No
  Sender: FDA-Public Use
  Company Number: US-009507513-1210USA012638

PATIENT
  Sex: Male

DRUGS (1)
  1. PROPECIA [Suspect]
     Indication: ANDROGENETIC ALOPECIA
     Dosage: 1 MG, UNK
     Route: 048
     Dates: start: 19980828, end: 20010501

REACTIONS (29)
  - Hypogonadism [Unknown]
  - Blood testosterone decreased [Unknown]
  - Cognitive disorder [Not Recovered/Not Resolved]
  - Bursitis infective [Unknown]
  - Varicose vein operation [Unknown]
  - Varicose vein operation [Unknown]
  - Varicose vein operation [Unknown]
  - Varicose vein operation [Unknown]
  - Eye inflammation [Unknown]
  - Bacterial infection [Unknown]
  - Hypertension [Unknown]
  - Herpes zoster [Unknown]
  - Pain [Unknown]
  - Inflammation [Unknown]
  - Myalgia [Unknown]
  - Sinusitis [Unknown]
  - Infection [Unknown]
  - Onychomycosis [Unknown]
  - Sexual dysfunction [Not Recovered/Not Resolved]
  - Erectile dysfunction [Unknown]
  - Hyperlipidaemia [Unknown]
  - Fatigue [Unknown]
  - Malaise [Unknown]
  - Acute sinusitis [Unknown]
  - Oropharyngeal pain [Unknown]
  - Rhinitis [Unknown]
  - Eustachian tube dysfunction [Unknown]
  - Back pain [Unknown]
  - Pyrexia [Unknown]
